FAERS Safety Report 5156368-4 (Version None)
Quarter: 2006Q4

REPORT INFORMATION
  Report Type: 
  Country: None (occurrence: None)
  Receive Date: 20061122
  Receipt Date: 20061021
  Transmission Date: 20070319
  Serious: Yes (Death, Hospitalization)
  Sender: FDA-Public Use
  Company Number: GB-PURDUE-GBR_2006_0002550

PATIENT
  Age: 75 Year
  Sex: Female

DRUGS (1)
  1. OXYNORM INJECTION 10MG/ML [Suspect]
     Indication: CANCER PAIN
     Dosage: 50 MG, SINGLE
     Route: 058
     Dates: start: 20061023, end: 20061024

REACTIONS (5)
  - DEATH [None]
  - DISEASE PROGRESSION [None]
  - DRUG TOXICITY [None]
  - INCORRECT DOSE ADMINISTERED [None]
  - SOMNOLENCE [None]
